FAERS Safety Report 13913843 (Version 1)
Quarter: 2017Q3

REPORT INFORMATION
  Report Type: Spontaneous
  Country: US (occurrence: US)
  Receive Date: 20170829
  Receipt Date: 20170829
  Transmission Date: 20171127
  Serious: Yes (Hospitalization)
  Sender: FDA-Public Use
  Company Number: US-PFIZER INC-2017369013

PATIENT
  Age: 45 Year
  Sex: Male
  Weight: 88 kg

DRUGS (2)
  1. LYRICA [Suspect]
     Active Substance: PREGABALIN
     Dates: start: 20170814
  2. CLOVE OIL\HERBALS [Suspect]
     Active Substance: CLOVE OIL\HERBALS

REACTIONS (4)
  - Lethargy [Unknown]
  - Mood swings [Unknown]
  - Dyspnoea [Unknown]
  - Confusional state [Unknown]
